FAERS Safety Report 21690432 (Version 3)
Quarter: 2023Q4

REPORT INFORMATION
  Report Type: Report from Study
  Country: US (occurrence: US)
  Receive Date: 20221206
  Receipt Date: 20231123
  Transmission Date: 20240110
  Serious: No
  Sender: FDA-Public Use
  Company Number: US-ABBVIE-22K-163-4536296-00

PATIENT
  Sex: Female

DRUGS (3)
  1. RINVOQ [Suspect]
     Active Substance: UPADACITINIB
     Indication: Rheumatoid arthritis
     Dosage: EXTENDED RELEASE, LAST ADMIN DATE: 2022, FORM STRENGTH: 15 MILLIGRAMS
     Route: 048
     Dates: start: 202208
  2. RINVOQ [Suspect]
     Active Substance: UPADACITINIB
     Indication: Rheumatoid arthritis
     Dosage: EXTENDED RELEASE, FIRST AND LAST ADMIN DATE: 2022, FORM STRENGTH: 15 MILLIGRAMS
     Route: 048
  3. RINVOQ [Suspect]
     Active Substance: UPADACITINIB
     Indication: Rheumatoid arthritis
     Dosage: EXTENDED RELEASE, FIRST ADMIN DATE: NOV 2022, FORM STRENGTH: 15 MILLIGRAMS
     Route: 048

REACTIONS (26)
  - Walking aid user [Unknown]
  - Drug ineffective [Unknown]
  - Decreased appetite [Unknown]
  - Peripheral swelling [Recovered/Resolved]
  - Fatigue [Unknown]
  - Dysstasia [Unknown]
  - Pain [Recovered/Resolved]
  - Arthralgia [Unknown]
  - Pain in extremity [Not Recovered/Not Resolved]
  - Rheumatoid arthritis [Recovering/Resolving]
  - Chills [Unknown]
  - Insomnia [Unknown]
  - Rhinorrhoea [Unknown]
  - Fall [Unknown]
  - Pain [Unknown]
  - Inflammation [Unknown]
  - Arthralgia [Unknown]
  - Joint stiffness [Unknown]
  - Mobility decreased [Unknown]
  - Asthenia [Unknown]
  - Oropharyngeal pain [Unknown]
  - Hot flush [Unknown]
  - Nasopharyngitis [Unknown]
  - Ocular hyperaemia [Unknown]
  - Grip strength decreased [Unknown]
  - Loss of personal independence in daily activities [Unknown]

NARRATIVE: CASE EVENT DATE: 20220101
